FAERS Safety Report 9481722 (Version 2)
Quarter: 2013Q3

REPORT INFORMATION
  Report Type: Spontaneous
  Country: US (occurrence: US)
  Receive Date: 20130828
  Receipt Date: 20130828
  Transmission Date: 20140515
  Serious: Yes (Hospitalization)
  Sender: FDA-Public Use
  Company Number: US-AMGEN-KDL221090

PATIENT
  Age: 69 Year
  Sex: Female

DRUGS (2)
  1. ENBREL [Suspect]
     Indication: RHEUMATOID ARTHRITIS
     Dosage: 50 MG, QWK
     Route: 058
     Dates: start: 20060810
  2. LEFLUNOMIDE [Concomitant]
     Dosage: 20 MG, QD
     Route: 048
     Dates: start: 2006

REACTIONS (3)
  - Cholelithiasis [Unknown]
  - Alopecia [Unknown]
  - Dyspepsia [Unknown]
